FAERS Safety Report 4514005-3 (Version None)
Quarter: 2004Q4

REPORT INFORMATION
  Report Type: 
  Country: None (occurrence: None)
  Receive Date: 20041130
  Receipt Date: 20041018
  Transmission Date: 20050328
  Serious: No
  Sender: FDA-Public Use
  Company Number: US-GLAXOSMITHKLINE-A0530197A

PATIENT
  Age: 30 Year
  Sex: Male

DRUGS (3)
  1. WELLBUTRIN XL [Suspect]
     Indication: ILL-DEFINED DISORDER
     Dosage: 150MG TWICE PER DAY
     Route: 048
     Dates: start: 20040701
  2. SERZONE [Concomitant]
  3. REMERON [Concomitant]

REACTIONS (5)
  - AGITATION [None]
  - AMNESIA [None]
  - CHEST DISCOMFORT [None]
  - CONFUSIONAL STATE [None]
  - INSOMNIA [None]
